FAERS Safety Report 9031039 (Version 1)
Quarter: 2013Q1

REPORT INFORMATION
  Report Type: Spontaneous
  Country: MX (occurrence: MX)
  Receive Date: 20130123
  Receipt Date: 20130123
  Transmission Date: 20140127
  Serious: Yes (Death)
  Sender: FDA-Public Use
  Company Number: MX-PFIZER INC-2013028461

PATIENT
  Age: 86 Year
  Sex: Male
  Weight: 65 kg

DRUGS (4)
  1. LIPITOR [Suspect]
     Indication: HYPERCHOLESTEROLAEMIA
     Dosage: 20 MBQ, ONCE DAILY
     Route: 048
     Dates: end: 20130111
  2. ISCOVER [Concomitant]
     Indication: HYPERTENSION
     Dosage: UNK
     Route: 048
     Dates: end: 20130110
  3. METOPROLOL [Concomitant]
  4. COZAAR [Concomitant]

REACTIONS (2)
  - Myocardial infarction [Fatal]
  - Intestinal ischaemia [Fatal]
